FAERS Safety Report 6158861-4 (Version None)
Quarter: 2009Q2

REPORT INFORMATION
  Report Type: 
  Country: None (occurrence: None)
  Receive Date: 20090417
  Receipt Date: 20090414
  Transmission Date: 20091009
  Serious: Yes (Other)
  Sender: FDA-Public Use
  Company Number: PT-ABBOTT-09P-130-0568227-00

PATIENT
  Sex: Male
  Weight: 75 kg

DRUGS (1)
  1. LUCRIN DEPOT 11.25 MG [Suspect]
     Indication: PROSTATE CANCER
     Dates: start: 20061012, end: 20061012

REACTIONS (1)
  - HYPERSENSITIVITY [None]
